FAERS Safety Report 11148352 (Version 1)
Quarter: 2015Q2

REPORT INFORMATION
  Report Type: Spontaneous
  Country: GB (occurrence: GB)
  Receive Date: 20150529
  Receipt Date: 20150529
  Transmission Date: 20150821
  Serious: Yes (Other)
  Sender: FDA-Public Use
  Company Number: GB-PFIZER INC-2015153340

PATIENT
  Age: 11 Week
  Sex: Female
  Weight: 3.8 kg

DRUGS (5)
  1. AMIODARONE [Suspect]
     Active Substance: AMIODARONE
     Indication: NODAL ARRHYTHMIA
     Dosage: 10MCG/KG/MIN FOR 10H
     Route: 042
  2. ADENOSINE. [Concomitant]
     Active Substance: ADENOSINE
     Dosage: UNK
  3. ESMOLOL [Suspect]
     Active Substance: ESMOLOL HYDROCHLORIDE
     Indication: ARRHYTHMIA
     Dosage: 500 ?G/KG, SINGLE
     Route: 065
  4. AMIODARONE HCL [Suspect]
     Active Substance: AMIODARONE HYDROCHLORIDE
     Indication: NODAL ARRHYTHMIA
     Dosage: 5 MG/KG, SINGLE
     Route: 065
  5. ESMOLOL [Suspect]
     Active Substance: ESMOLOL HYDROCHLORIDE
     Dosage: 25 MCG/KG/MIN
     Route: 042

REACTIONS (4)
  - Circulatory collapse [Recovered/Resolved]
  - Bradycardia [Recovered/Resolved]
  - Product use issue [Unknown]
  - Cardiac output decreased [Recovered/Resolved]
